FAERS Safety Report 11400717 (Version 1)
Quarter: 2015Q3

REPORT INFORMATION
  Report Type: Spontaneous
  Country: US (occurrence: US)
  Receive Date: 20150820
  Receipt Date: 20150820
  Transmission Date: 20151125
  Serious: Yes (Other)
  Sender: FDA-Public Use
  Company Number: US-BAYER-2015-400834

PATIENT
  Age: 77 Year
  Sex: Female

DRUGS (2)
  1. ATIVAN [Concomitant]
     Active Substance: LORAZEPAM
  2. BAYER LOW DOSE [Suspect]
     Active Substance: ASPIRIN
     Indication: ANTICOAGULANT THERAPY
     Dosage: DAILY FOR ABOUT 12 YEARS
     Route: 048

REACTIONS (8)
  - Tinnitus [Not Recovered/Not Resolved]
  - Intentional product use issue [Unknown]
  - Unevaluable event [Unknown]
  - Off label use [Unknown]
  - Deafness [Unknown]
  - Dizziness [Unknown]
  - Vomiting [Unknown]
  - Headache [Unknown]
